FAERS Safety Report 7290951-5 (Version None)
Quarter: 2011Q1

REPORT INFORMATION
  Report Type: 
  Country: None (occurrence: None)
  Receive Date: 20110214
  Receipt Date: 20110204
  Transmission Date: 20110831
  Serious: Yes (Death, Other)
  Sender: FDA-Public Use
  Company Number: GB-GENZYME-RENA-1001070

PATIENT
  Sex: Female

DRUGS (1)
  1. RENAGEL [Suspect]
     Indication: HYPERPHOSPHATAEMIA
     Dosage: UNK
     Route: 048

REACTIONS (3)
  - ABDOMINAL PAIN [None]
  - INTESTINAL OBSTRUCTION [None]
  - DEATH [None]
